FAERS Safety Report 5294657-3 (Version None)
Quarter: 2007Q1

REPORT INFORMATION
  Report Type: 
  Country: None (occurrence: None)
  Receive Date: 20070116
  Receipt Date: 20060822
  Transmission Date: 20070707
  Serious: Yes (Other)
  Sender: FDA-Public Use
  Company Number: HQWYE878823AUG06

PATIENT
  Age: 74 Year
  Sex: Female
  Weight: 47.67 kg

DRUGS (1)
  1. PREMPRO [Suspect]
     Indication: HORMONE THERAPY
     Dosage: ORAL
     Route: 048
     Dates: end: 20010101

REACTIONS (1)
  - BREAST CANCER IN SITU [None]
